FAERS Safety Report 14300721 (Version 4)
Quarter: 2018Q1

REPORT INFORMATION
  Report Type: Spontaneous
  Country: US (occurrence: US)
  Receive Date: 20171219
  Receipt Date: 20180319
  Transmission Date: 20180509
  Serious: No
  Sender: FDA-Public Use
  Company Number: US-ALK-ABELLO A/S-2017AA004014

PATIENT

DRUGS (2)
  1. STAE BULK 225 [Suspect]
     Active Substance: PHLEUM PRATENSE POLLEN
     Indication: PRODUCT USED FOR UNKNOWN INDICATION
     Dosage: UNK
     Dates: start: 20170926, end: 20170926
  2. STAE BULK 225 [Suspect]
     Active Substance: PHLEUM PRATENSE POLLEN
     Dosage: UNK
     Route: 023
     Dates: start: 20171030, end: 20171030

REACTIONS (2)
  - Urticaria [Unknown]
  - Local reaction [Unknown]

NARRATIVE: CASE EVENT DATE: 20170926
